FAERS Safety Report 8112627-4 (Version None)
Quarter: 2012Q1

REPORT INFORMATION
  Report Type: 
  Country: None (occurrence: None)
  Receive Date: 20120203
  Receipt Date: 20120126
  Transmission Date: 20120608
  Serious: Yes (Hospitalization)
  Sender: FDA-Public Use
  Company Number: US-NOVOPROD-343871

PATIENT
  Age: 49 Year
  Sex: Male
  Weight: 109 kg

DRUGS (7)
  1. LANTUS [Concomitant]
     Indication: TYPE 2 DIABETES MELLITUS
     Dosage: 10 U, AT BEDTIME
     Route: 058
  2. NOVOLOG [Suspect]
     Dosage: 25 U, TID
     Route: 058
     Dates: start: 20120126
  3. NOVOLOG [Suspect]
     Indication: TYPE 2 DIABETES MELLITUS
     Dosage: 25 U, TID
     Route: 058
     Dates: end: 20120122
  4. NOVOLOG [Suspect]
     Dosage: SLIDING SCALE
     Route: 058
     Dates: start: 20120123, end: 20120126
  5. ASPIRIN [Concomitant]
     Indication: PRODUCT USED FOR UNKNOWN INDICATION
     Dosage: 81 MG, QD
  6. LISINOPRIL [Concomitant]
     Indication: HYPERTENSION
     Dosage: 2.5 MG, UNK
  7. SIMVASTATIN [Concomitant]
     Indication: DYSLIPIDAEMIA

REACTIONS (2)
  - CELLULITIS [None]
  - THERAPEUTIC RESPONSE DECREASED [None]
